FAERS Safety Report 9273942 (Version 2)
Quarter: 2013Q3

REPORT INFORMATION
  Report Type: Spontaneous
  Country: US (occurrence: US)
  Receive Date: 20130506
  Receipt Date: 20130708
  Transmission Date: 20140515
  Serious: No
  Sender: FDA-Public Use
  Company Number: US-AMGEN-USASP2013027055

PATIENT
  Age: 34 Year
  Sex: Female
  Weight: 114.29 kg

DRUGS (2)
  1. ENBREL [Suspect]
     Indication: RHEUMATOID ARTHRITIS
     Dosage: 50 MG, QWK
     Route: 058
     Dates: start: 20111020
  2. METHOTREXATE [Concomitant]
     Dosage: 25 MG, QWK
     Dates: start: 2010

REACTIONS (2)
  - Nasopharyngitis [Recovered/Resolved]
  - Injection site pain [Recovered/Resolved]
